FAERS Safety Report 4363628-3 (Version None)
Quarter: 2004Q2

REPORT INFORMATION
  Report Type: 
  Country: None (occurrence: None)
  Receive Date: 20040524
  Receipt Date: 20040511
  Transmission Date: 20050107
  Serious: Yes (Hospitalization, Other)
  Sender: FDA-Public Use
  Company Number: PHHO2004US07020

PATIENT
  Age: 56 Year
  Sex: Female
  Weight: 63 kg

DRUGS (2)
  1. ZOLEDRONATE [Suspect]
     Indication: METASTASES TO BONE
     Dosage: 4 MG EVERY 6 MONTHS
     Route: 042
     Dates: start: 20030617
  2. FEMARA [Suspect]
     Dosage: 2.5 MG, QD
     Route: 048
     Dates: start: 20030617

REACTIONS (5)
  - ARTHRALGIA [None]
  - CELLULITIS [None]
  - PAIN IN EXTREMITY [None]
  - TENDON SHEATH INCISION [None]
  - TRIGGER FINGER [None]
